FAERS Safety Report 5520863-6 (Version None)
Quarter: 2007Q4

REPORT INFORMATION
  Report Type: 
  Country: None (occurrence: None)
  Receive Date: 20071119
  Receipt Date: 20071115
  Transmission Date: 20080405
  Serious: Yes (Other)
  Sender: FDA-Public Use
  Company Number: B0493386A

PATIENT
  Age: 27 Year
  Sex: Female
  Weight: 48.1 kg

DRUGS (4)
  1. PAXIL [Suspect]
     Indication: PANIC DISORDER
     Route: 048
     Dates: start: 20060713, end: 20071008
  2. MEILAX [Concomitant]
     Indication: ANXIETY DISORDER
     Dosage: 1MG PER DAY
     Route: 048
     Dates: start: 20070702
  3. SOLANAX [Concomitant]
     Route: 048
     Dates: start: 20071011, end: 20071020
  4. CHINESE MEDICINE [Concomitant]
     Indication: ANXIETY DISORDER
     Dosage: 7.5G PER DAY
     Route: 048
     Dates: start: 20070702

REACTIONS (10)
  - AGITATION [None]
  - DIZZINESS [None]
  - DRUG WITHDRAWAL SYNDROME [None]
  - DYSPNOEA [None]
  - ELEVATED MOOD [None]
  - EUPHORIC MOOD [None]
  - MANIA [None]
  - NAUSEA [None]
  - PAIN IN EXTREMITY [None]
  - VOMITING [None]
